FAERS Safety Report 5275755-7 (Version None)
Quarter: 2007Q1

REPORT INFORMATION
  Report Type: 
  Country: None (occurrence: None)
  Receive Date: 20070326
  Receipt Date: 20070321
  Transmission Date: 20070707
  Serious: Yes (Disabling)
  Sender: FDA-Public Use
  Company Number: US-GLAXOSMITHKLINE-A0644121A

PATIENT
  Age: 19 Year
  Sex: Female

DRUGS (3)
  1. WELLBUTRIN [Suspect]
     Indication: DRUG USE FOR UNKNOWN INDICATION
     Route: 048
     Dates: start: 20070101
  2. LAMICTAL [Concomitant]
  3. NUVARING [Concomitant]

REACTIONS (5)
  - DRUG ADMINISTRATION ERROR [None]
  - FATIGUE [None]
  - INCOHERENT [None]
  - MALAISE [None]
  - OVERDOSE [None]
